FAERS Safety Report 4665385-X (Version None)
Quarter: 2005Q2

REPORT INFORMATION
  Report Type: 
  Country: None (occurrence: None)
  Receive Date: 20050518
  Receipt Date: 20050518
  Transmission Date: 20051028
  Serious: Yes (Hospitalization)
  Sender: FDA-Public Use
  Company Number: None

PATIENT
  Sex: Female
  Weight: 74 kg

DRUGS (2)
  1. CYMBALTA [Suspect]
     Indication: FIBROMYALGIA
     Dosage: 60 MG PO DAILY [SEVERAL MONTHS]
     Route: 048
  2. CYMBALTA [Suspect]
     Indication: OFF LABEL USE
     Dosage: 60 MG PO DAILY [SEVERAL MONTHS]
     Route: 048

REACTIONS (3)
  - BIPOLAR DISORDER [None]
  - CONDITION AGGRAVATED [None]
  - MANIA [None]
